FAERS Safety Report 17822214 (Version 5)
Quarter: 2023Q4

REPORT INFORMATION
  Report Type: Spontaneous
  Country: DE (occurrence: DE)
  Receive Date: 20200526
  Receipt Date: 20231204
  Transmission Date: 20240110
  Serious: Yes (Congenital Anomaly, Other)
  Sender: FDA-Public Use
  Company Number: None

PATIENT
  Age: 1 Day
  Sex: Female
  Weight: 4.08 kg

DRUGS (3)
  1. IVABRADINE [Suspect]
     Active Substance: IVABRADINE
     Indication: Supraventricular tachycardia
     Dosage: UNK
     Route: 064
  2. NAPROXEN [Concomitant]
     Active Substance: NAPROXEN
     Indication: Supraventricular tachycardia
     Dosage: UNK UNK, QD
     Route: 064
  3. METAMIZOLE [Concomitant]
     Active Substance: METAMIZOLE
     Indication: Supraventricular tachycardia
     Dosage: UNK
     Route: 064

REACTIONS (2)
  - Tracheal atresia [Unknown]
  - Foetal exposure during pregnancy [Recovered/Resolved]
